FAERS Safety Report 15338309 (Version 1)
Quarter: 2018Q3

REPORT INFORMATION
  Report Type: Spontaneous
  Country: US (occurrence: US)
  Receive Date: 20180831
  Receipt Date: 20180831
  Transmission Date: 20181010
  Serious: Yes (Hospitalization, Other)
  Sender: FDA-Public Use
  Company Number: US-009507513-1808USA010940

PATIENT
  Age: 68 Year
  Sex: Male

DRUGS (9)
  1. BELSOMRA [Suspect]
     Active Substance: SUVOREXANT
     Indication: INSOMNIA
     Dosage: 1 TABLET TWICE A NIGHT: BEFORE THE PATIENT GOES TO BED AND ANOTHER AT 4 PM
     Route: 048
     Dates: start: 201608
  2. MELATONIN [Suspect]
     Active Substance: MELATONIN
     Dosage: 1 TABLET BEFORE HE GOES TO BED AND ANOTHER AT 4 PM
     Route: 048
  3. DIURETIC (UNSPECIFIED) [Concomitant]
     Active Substance: UNSPECIFIED INGREDIENT
     Dosage: UNK
  4. MAGNESIUM (UNSPECIFIED) [Concomitant]
     Active Substance: MAGNESIUM
     Indication: MUSCLE SPASMS
     Dosage: AT BEDTIME AND AT 4 PM IN THE MORNING
  5. ZYRTEC [Concomitant]
     Active Substance: CETIRIZINE HYDROCHLORIDE
     Dosage: UNK
  6. LIPITOR [Concomitant]
     Active Substance: ATORVASTATIN CALCIUM
     Dosage: UNK
  7. METAMUCIL [Concomitant]
     Active Substance: PLANTAGO SEED
     Dosage: UNK
  8. ALLOPURINOL. [Concomitant]
     Active Substance: ALLOPURINOL
     Dosage: UNK
  9. UBIDECARENONE [Concomitant]
     Active Substance: UBIDECARENONE
     Dosage: UNK

REACTIONS (4)
  - Hernia [Recovered/Resolved]
  - Gastrointestinal disorder [Recovered/Resolved]
  - Diarrhoea [Recovering/Resolving]
  - Product use issue [Unknown]

NARRATIVE: CASE EVENT DATE: 201608
